FAERS Safety Report 8070486-2 (Version None)
Quarter: 2012Q1

REPORT INFORMATION
  Report Type: 
  Country: None (occurrence: None)
  Receive Date: 20120125
  Receipt Date: 20111220
  Transmission Date: 20120608
  Serious: Yes (Other)
  Sender: FDA-Public Use
  Company Number: PHHY2011JP115241

PATIENT
  Age: 75 Year
  Sex: Female

DRUGS (5)
  1. TAMOXIFEN CITRATE [Concomitant]
  2. AROMASIN [Concomitant]
  3. NOLVADEX [Concomitant]
  4. ZOMETA [Suspect]
     Indication: METASTASES TO BONE
     Route: 042
     Dates: start: 20080601, end: 20090201
  5. FEMARA [Suspect]
     Dosage: UNK UKN, UNK
     Route: 048

REACTIONS (6)
  - NEOPLASM PROGRESSION [None]
  - NEOPLASM MALIGNANT [None]
  - METASTASES TO PLEURA [None]
  - METASTASES TO HEART [None]
  - PECTUS EXCAVATUM [None]
  - SKIN FLAP NECROSIS [None]
